FAERS Safety Report 17881718 (Version 3)
Quarter: 2020Q3

REPORT INFORMATION
  Report Type: Spontaneous
  Country: US (occurrence: US)
  Receive Date: 20200610
  Receipt Date: 20200804
  Transmission Date: 20201103
  Serious: Yes (Other)
  Sender: FDA-Public Use
  Company Number: US-SA-2020SA147342

PATIENT

DRUGS (1)
  1. DUPIXENT [Suspect]
     Active Substance: DUPILUMAB
     Indication: DERMATITIS ATOPIC
     Dosage: 300 MG, QM
     Route: 058
     Dates: start: 20170630

REACTIONS (3)
  - Product use issue [Unknown]
  - Herpes simplex [Recovering/Resolving]
  - Eczema herpeticum [Unknown]

NARRATIVE: CASE EVENT DATE: 20170630
